FAERS Safety Report 9230238 (Version 1)
Quarter: 2013Q2

REPORT INFORMATION
  Report Type: Spontaneous
  Country: ES (occurrence: ES)
  Receive Date: 20130415
  Receipt Date: 20130415
  Transmission Date: 20140414
  Serious: Yes (Other)
  Sender: FDA-Public Use
  Company Number: PHHY2013ES034413

PATIENT
  Age: 74 Year
  Sex: Male

DRUGS (2)
  1. ZOMETA [Suspect]
     Indication: METASTASES TO BONE
     Dosage: 4 MG/100ML
     Route: 042
     Dates: start: 20110124, end: 201112
  2. DOCETAXEL [Concomitant]
     Indication: PROSTATE CANCER METASTATIC
     Dosage: 145 MG, EVERY THREE WEEKS
     Route: 042
     Dates: start: 20110401, end: 20111011

REACTIONS (2)
  - Osteonecrosis of jaw [Not Recovered/Not Resolved]
  - Toothache [Unknown]
